FAERS Safety Report 7823093-8 (Version None)
Quarter: 2011Q4

REPORT INFORMATION
  Report Type: 
  Country: None (occurrence: None)
  Receive Date: 20111019
  Receipt Date: 20111010
  Transmission Date: 20120403
  Serious: No
  Sender: FDA-Public Use
  Company Number: FR-BIOGENIDEC-2011BI001575

PATIENT
  Age: 42 Year
  Sex: Male

DRUGS (11)
  1. TEGRETOL [Concomitant]
  2. CLONAZEPAM [Concomitant]
  3. TYSABRI [Suspect]
     Indication: MULTIPLE SCLEROSIS
     Route: 042
     Dates: start: 20080808
  4. DESLORATADINE [Concomitant]
     Indication: HYPERSENSITIVITY
  5. DI-HYDAN [Concomitant]
     Indication: EPILEPSY
  6. VENTOLIN [Concomitant]
     Indication: ASTHMA
  7. PAIN MEDICATION (NOS) [Concomitant]
     Indication: PAIN
  8. AMITRIPTYLINE HCL [Concomitant]
  9. ALFUZOSIN HCL [Concomitant]
  10. TRAMADOL HCL [Concomitant]
  11. LAXATIVE (NOS) [Concomitant]
     Indication: LAXATIVE SUPPORTIVE CARE

REACTIONS (1)
  - LIVER DISORDER [None]
